FAERS Safety Report 21825761 (Version 1)
Quarter: 2023Q1

REPORT INFORMATION
  Report Type: Spontaneous
  Country: US (occurrence: US)
  Receive Date: 20230105
  Receipt Date: 20230105
  Transmission Date: 20230418
  Serious: No
  Sender: FDA-Public Use
  Company Number: US-drreddys-SPO/USA/22/0158636

PATIENT
  Age: 65 Year
  Sex: Male

DRUGS (5)
  1. LENALIDOMIDE [Suspect]
     Active Substance: LENALIDOMIDE
     Indication: Gastrointestinal disorder
  2. ASPIRIN TBE 81MG [Concomitant]
     Indication: Product used for unknown indication
  3. LEVOTHYROXIN TAB 125MCG [Concomitant]
     Indication: Product used for unknown indication
  4. MAGNESIUM TAB 400MG [Concomitant]
     Indication: Product used for unknown indication
  5. VITAMIN D3 POW [Concomitant]
     Indication: Product used for unknown indication

REACTIONS (1)
  - Constipation [Unknown]
